FAERS Safety Report 9914671 (Version 1)
Quarter: 2014Q1

REPORT INFORMATION
  Report Type: Spontaneous
  Country: IT (occurrence: IT)
  Receive Date: 20140220
  Receipt Date: 20140220
  Transmission Date: 20141002
  Serious: No
  Sender: FDA-Public Use
  Company Number: PHHY2014IT020754

PATIENT
  Age: 64 Year
  Sex: Male

DRUGS (6)
  1. TASIGNA [Suspect]
     Indication: CHRONIC MYELOID LEUKAEMIA
     Dosage: 200 MG, DAILY
     Route: 048
     Dates: start: 20131215
  2. PANTORC [Concomitant]
     Dosage: UNK UKN, UNK
  3. FOLINA [Concomitant]
     Dosage: UNK UKN, UNK
  4. LASITONE [Concomitant]
     Dosage: UNK UKN, UNK
  5. LASITONE [Concomitant]
     Dosage: DOSE INCREASED
  6. DEPAKIN [Concomitant]
     Dosage: UNK UKN, UNK

REACTIONS (3)
  - Erythema [Unknown]
  - Oedema peripheral [Unknown]
  - Pruritus [Unknown]
